FAERS Safety Report 24291699 (Version 3)
Quarter: 2025Q1

REPORT INFORMATION
  Report Type: Report from Study
  Country: US (occurrence: US)
  Receive Date: 20240906
  Receipt Date: 20250305
  Transmission Date: 20250409
  Serious: No
  Sender: NOVARTIS
  Company Number: US-002147023-NVSC2024US178295

PATIENT
  Sex: Female

DRUGS (2)
  1. KESIMPTA [Suspect]
     Active Substance: OFATUMUMAB
     Indication: Product used for unknown indication
     Route: 065
     Dates: start: 20240822
  2. KESIMPTA [Suspect]
     Active Substance: OFATUMUMAB
     Route: 065
     Dates: start: 20240829

REACTIONS (14)
  - Nasal congestion [Unknown]
  - Respiratory disorder [Unknown]
  - Mobility decreased [Unknown]
  - Throat irritation [Unknown]
  - Hypotonia [Unknown]
  - Urinary tract infection [Unknown]
  - Back pain [Unknown]
  - Micturition urgency [Unknown]
  - Pain [Unknown]
  - Escherichia infection [Unknown]
  - Scoliosis [Unknown]
  - Muscle twitching [Unknown]
  - Gait inability [Unknown]
  - Burning sensation [Unknown]
